FAERS Safety Report 5589376-X (Version None)
Quarter: 2008Q1

REPORT INFORMATION
  Report Type: 
  Country: None (occurrence: None)
  Receive Date: 20080114
  Receipt Date: 20080109
  Transmission Date: 20080703
  Serious: Yes (Other)
  Sender: FDA-Public Use
  Company Number: GB-ALLERGAN-0707296US

PATIENT
  Sex: Female

DRUGS (15)
  1. OCUFEN [Suspect]
     Indication: PREOPERATIVE CARE
     Dosage: 1 DF, UNK
     Route: 047
     Dates: start: 20070502, end: 20070502
  2. OCUFEN [Suspect]
  3. OCUFEN [Suspect]
  4. CYCLOPENTOLATE HCL [Suspect]
     Indication: CATARACT OPERATION
     Dosage: 1 DF, UNK
     Route: 047
     Dates: start: 20070502, end: 20070502
  5. PHENYLEPHRINE [Suspect]
     Indication: CATARACT OPERATION
     Dosage: 1 DF, UNK
     Route: 047
     Dates: start: 20070502, end: 20070502
  6. LIDOCAINE [Suspect]
     Indication: ANAESTHESIA
     Dosage: 2 ML, UNK
     Route: 047
     Dates: start: 20070502, end: 20070502
  7. POVIDONE IODINE [Suspect]
     Indication: CATARACT OPERATION
     Dosage: UNK, UNK
     Route: 047
     Dates: start: 20070502, end: 20070502
  8. BALANCED SALT SOLUTION [Suspect]
     Indication: PREOPERATIVE CARE
     Dates: start: 20070502
  9. HYALURONIDASE [Suspect]
     Indication: CATARACT OPERATION
     Dosage: UNK, UNK
     Route: 047
     Dates: start: 20070502, end: 20070502
  10. BETAMETHASONE [Suspect]
     Indication: EYE OPERATION
     Dosage: UNK, UNK
     Route: 047
     Dates: start: 20070502, end: 20070502
  11. NEOMYCIN [Suspect]
     Indication: EYE OPERATION
     Route: 047
     Dates: start: 20070502, end: 20070502
  12. ADRENALINE [Suspect]
     Indication: CATARACT OPERATION
     Dosage: 0.3 ML, UNK
     Route: 047
     Dates: start: 20070502, end: 20070502
  13. ADRENALINE [Suspect]
     Indication: EYE IRRIGATION
  14. VANCOMYCIN [Suspect]
     Indication: CATARACT OPERATION
     Dosage: 10 MG, UNK
     Route: 047
     Dates: start: 20070502, end: 20070502
  15. VANCOMYCIN [Suspect]
     Indication: EYE IRRIGATION

REACTIONS (1)
  - TOXIC ANTERIOR SEGMENT SYNDROME [None]
